FAERS Safety Report 9208723 (Version 2)
Quarter: 2013Q1

REPORT INFORMATION
  Report Type: Spontaneous
  Country: US (occurrence: None)
  Receive Date: 20130307
  Receipt Date: 20130328
  Transmission Date: 20140127
  Serious: No
  Sender: FDA-Public Use
  Company Number: AXC-2013-000075

PATIENT
  Age: 70 Year
  Sex: Female
  Weight: 53.1 kg

DRUGS (3)
  1. ZENPEP [Suspect]
     Indication: CONGENITAL PANCREATIC ANOMALY
     Route: 048
     Dates: start: 201207
  2. OMEPRAZOLE (OMEPRAZOLE) [Concomitant]
  3. LOVASTATIN (LOVASTATIN) TABLET [Concomitant]

REACTIONS (5)
  - Aphonia [None]
  - Dysphonia [None]
  - Vocal cord disorder [None]
  - Dysphonia [None]
  - Vocal cord inflammation [None]
